FAERS Safety Report 8977927 (Version 1)
Quarter: 2012Q4

REPORT INFORMATION
  Report Type: 
  Country: US (occurrence: US)
  Receive Date: 20121219
  Receipt Date: 20121219
  Transmission Date: 20130627
  Serious: Yes (Hospitalization)
  Sender: FDA-Public Use
  Company Number: US-SANOFI-AVENTIS-2012SA090719

PATIENT
  Age: 49 Year
  Sex: Male
  Weight: 78 kg

DRUGS (5)
  1. PLAVIX [Suspect]
     Indication: STENT PLACEMENT
     Route: 048
     Dates: start: 201212
  2. ESMOLOL [Concomitant]
     Route: 041
  3. METOPROLOL [Concomitant]
  4. ASPIRIN [Concomitant]
     Route: 054
  5. ATORVASTATIN [Concomitant]

REACTIONS (2)
  - Gastrointestinal obstruction [Not Recovered/Not Resolved]
  - Abdominal pain [Unknown]
